FAERS Safety Report 5044373-8 (Version None)
Quarter: 2006Q2

REPORT INFORMATION
  Report Type: 
  Country: None (occurrence: None)
  Receive Date: 20060629
  Receipt Date: 20060619
  Transmission Date: 20061013
  Serious: Yes (Other)
  Sender: FDA-Public Use
  Company Number: B0428802A

PATIENT
  Age: 15 Year
  Sex: Female

DRUGS (5)
  1. ADVAIR UNSPECIFIED INHALER DEVICE (FLUTICASONE+SALMETEROL) [Suspect]
     Indication: ASTHMA
     Dosage: TWICE PER DAY / INHALED
     Route: 055
  2. LOPINAVIR + RITONAVIR (LOPINAVIR + RITONAVIR) [Suspect]
     Indication: HIV INFECTION
     Dosage: TWICE PER DAY /
  3. LAMIVUDINE [Concomitant]
  4. ABACAVIR SULFATE [Concomitant]
  5. PREDNISONE TAB [Concomitant]

REACTIONS (5)
  - ADRENAL SUPPRESSION [None]
  - CUSHING'S SYNDROME [None]
  - TETANY [None]
  - THROMBOCYTOPENIA [None]
  - WEIGHT INCREASED [None]
